FAERS Safety Report 10035227 (Version 2)
Quarter: 2014Q1

REPORT INFORMATION
  Report Type: Report from Study
  Country: FR (occurrence: FR)
  Receive Date: 20140325
  Receipt Date: 20140325
  Transmission Date: 20141002
  Serious: Yes (Other)
  Sender: FDA-Public Use
  Company Number: PHHY2014FR033466

PATIENT
  Age: 86 Year
  Sex: Female

DRUGS (7)
  1. ACLASTA/ZOLEDRONATE [Suspect]
     Indication: OSTEOPOROSIS
     Dosage: 5 MG, FIRST INFUSION
     Route: 042
     Dates: start: 20111013, end: 20111013
  2. SINEMET [Concomitant]
     Indication: PARKINSON^S DISEASE
     Dosage: 100/10 MG, UNK
     Dates: start: 2009
  3. KARDEGIC [Concomitant]
  4. SPASFON [Concomitant]
  5. DOLIPRANE [Concomitant]
  6. SPIRONOLACTONE [Concomitant]
  7. CELEBREX [Concomitant]
     Dates: start: 2013

REACTIONS (2)
  - Spinal fracture [Recovered/Resolved]
  - Fall [Unknown]
